FAERS Safety Report 19639007 (Version 1)
Quarter: 2021Q3

REPORT INFORMATION
  Report Type: Spontaneous
  Country: US (occurrence: US)
  Receive Date: 20210729
  Receipt Date: 20210729
  Transmission Date: 20211014
  Serious: No
  Sender: FDA-Public Use
  Company Number: US-SA-2021SA247268

PATIENT
  Age: 29 Year
  Sex: Female

DRUGS (1)
  1. DUPIXENT [Suspect]
     Active Substance: DUPILUMAB
     Indication: PRODUCT USED FOR UNKNOWN INDICATION
     Dosage: UNK
     Dates: start: 20210714

REACTIONS (6)
  - Eyelids pruritus [Unknown]
  - Pain [Unknown]
  - Condition aggravated [Unknown]
  - Erythema of eyelid [Unknown]
  - Sunburn [Unknown]
  - Dry skin [Unknown]

NARRATIVE: CASE EVENT DATE: 202107
